FAERS Safety Report 5957350-7 (Version None)
Quarter: 2008Q4

REPORT INFORMATION
  Report Type: 
  Country: None (occurrence: None)
  Receive Date: 20081114
  Receipt Date: 20081105
  Transmission Date: 20090506
  Serious: Yes (Life-Threatening)
  Sender: FDA-Public Use
  Company Number: 100#03#2008-05608

PATIENT
  Age: 49 Month
  Sex: Male

DRUGS (4)
  1. SERTRALINE [Suspect]
     Indication: DRUG USE FOR UNKNOWN INDICATION
     Dosage: 50 MG FOUR TIMES DAILY
     Route: 048
  2. LANSOPRAZOLE [Concomitant]
  3. OLANZAPAINE (OLANZAPINE) [Concomitant]
  4. ZOPICLONE (ZOPICLONE) [Concomitant]

REACTIONS (4)
  - BASE EXCESS INCREASED [None]
  - BLOOD PRESSURE INCREASED [None]
  - HEART RATE INCREASED [None]
  - PANCREATITIS HAEMORRHAGIC [None]
